FAERS Safety Report 20675064 (Version 20)
Quarter: 2025Q1

REPORT INFORMATION
  Report Type: Report from Study
  Country: US (occurrence: US)
  Receive Date: 20220405
  Receipt Date: 20250227
  Transmission Date: 20250408
  Serious: Yes (Hospitalization, Other)
  Sender: TAKEDA
  Company Number: US-TAKEDA-2022TUS021512

PATIENT
  Age: 58 Year
  Sex: Female
  Weight: 103 kg

DRUGS (40)
  1. HUMAN IMMUNOGLOBULIN G [Suspect]
     Active Substance: HUMAN IMMUNOGLOBULIN G
     Indication: Immunodeficiency common variable
     Dosage: 75 GRAM, Q3WEEKS
     Dates: start: 20120402
  2. HUMAN IMMUNOGLOBULIN G [Suspect]
     Active Substance: HUMAN IMMUNOGLOBULIN G
     Dosage: 75 GRAM, Q3WEEKS
     Dates: start: 20210410
  3. EPINEPHRINE [Concomitant]
     Active Substance: EPINEPHRINE
  4. SODIUM CHLORIDE [Concomitant]
     Active Substance: SODIUM CHLORIDE
  5. HEPARIN [Concomitant]
     Active Substance: HEPARIN SODIUM
  6. DOXYCYCLINE HYCLATE [Concomitant]
     Active Substance: DOXYCYCLINE HYCLATE
  7. LIDOCAINE\PRILOCAINE [Concomitant]
     Active Substance: LIDOCAINE\PRILOCAINE
  8. METHYLPREDNISOLONE [Concomitant]
     Active Substance: METHYLPREDNISOLONE
  9. SOLU-MEDROL [Concomitant]
     Active Substance: METHYLPREDNISOLONE SODIUM SUCCINATE
  10. FUROSEMIDE [Concomitant]
     Active Substance: FUROSEMIDE
  11. CLINDAMYCIN HYDROCHLORIDE [Concomitant]
     Active Substance: CLINDAMYCIN HYDROCHLORIDE
  12. METFORMIN HYDROCHLORIDE [Concomitant]
     Active Substance: METFORMIN HYDROCHLORIDE
  13. PROGESTERONE [Concomitant]
     Active Substance: PROGESTERONE
  14. VITAMIN C [Concomitant]
     Active Substance: ASCORBIC ACID
  15. FOLIC ACID [Concomitant]
     Active Substance: FOLIC ACID
  16. FENOFIBRATE [Concomitant]
     Active Substance: FENOFIBRATE
  17. VITAMIN D3 [Concomitant]
     Active Substance: CHOLECALCIFEROL
  18. SINGULAIR [Concomitant]
     Active Substance: MONTELUKAST SODIUM
  19. ACYCLOVIR [Concomitant]
     Active Substance: ACYCLOVIR
  20. BIOTIN [Concomitant]
     Active Substance: BIOTIN
  21. LORATADINE [Concomitant]
     Active Substance: LORATADINE
  22. LYRICA [Concomitant]
     Active Substance: PREGABALIN
  23. CLOBETASOL [Concomitant]
     Active Substance: CLOBETASOL
  24. DESONIDE [Concomitant]
     Active Substance: DESONIDE
  25. VENTOLIN HFA [Concomitant]
     Active Substance: ALBUTEROL SULFATE
  26. ARMOUR THYROID [Concomitant]
     Active Substance: THYROID, PORCINE
  27. TYLENOL ARTHRITIS PAIN [Concomitant]
     Active Substance: ACETAMINOPHEN
  28. GARLIC [Concomitant]
     Active Substance: GARLIC
  29. SPIRONOLACTONE [Concomitant]
     Active Substance: SPIRONOLACTONE
  30. FLAXSEED [Concomitant]
     Active Substance: FLAX SEED
  31. LEXAPRO [Concomitant]
     Active Substance: ESCITALOPRAM OXALATE
  32. NEXIUM [Concomitant]
     Active Substance: ESOMEPRAZOLE MAGNESIUM
  33. ULTRAM [Concomitant]
     Active Substance: TRAMADOL HYDROCHLORIDE
  34. FEXOFENADINE [Concomitant]
     Active Substance: FEXOFENADINE HYDROCHLORIDE
  35. TYLENOL [Concomitant]
     Active Substance: ACETAMINOPHEN
  36. CRANBERRY [Concomitant]
     Active Substance: CRANBERRY
  37. CLINDAMYCIN [Concomitant]
     Active Substance: CLINDAMYCIN
  38. Omega 3.6.9 [Concomitant]
  39. LOSARTAN [Concomitant]
     Active Substance: LOSARTAN
  40. OPIUM TINCTURE [Concomitant]
     Active Substance: MORPHINE

REACTIONS (32)
  - Pneumonia [Not Recovered/Not Resolved]
  - Pulmonary hypertension [Unknown]
  - Haemophilus infection [Unknown]
  - Chest pain [Unknown]
  - Pulmonary embolism [Unknown]
  - Infection [Unknown]
  - Sinus disorder [Unknown]
  - Urinary tract infection [Unknown]
  - Respiratory tract infection [Unknown]
  - Peripheral swelling [Unknown]
  - Tooth abscess [Unknown]
  - Chronic sinusitis [Unknown]
  - Animal bite [Unknown]
  - Nasopharyngitis [Unknown]
  - Illness [Unknown]
  - COVID-19 [Unknown]
  - Insurance issue [Unknown]
  - Bone pain [Unknown]
  - Gastrointestinal viral infection [Unknown]
  - Dehydration [Unknown]
  - Weight fluctuation [Unknown]
  - Product use issue [Unknown]
  - Inappropriate schedule of product administration [Unknown]
  - Product dose omission issue [Unknown]
  - Sinusitis [Not Recovered/Not Resolved]
  - Influenza [Unknown]
  - Feeling abnormal [Unknown]
  - Conjunctivitis [Unknown]
  - Pain in extremity [Unknown]
  - Dyspnoea [Unknown]
  - Vomiting [Unknown]
  - Diarrhoea [Unknown]

NARRATIVE: CASE EVENT DATE: 20220502
